FAERS Safety Report 7597922-X (Version None)
Quarter: 2011Q3

REPORT INFORMATION
  Report Type: 
  Country: None (occurrence: None)
  Receive Date: 20110708
  Receipt Date: 20110705
  Transmission Date: 20111222
  Serious: Yes (Other)
  Sender: FDA-Public Use
  Company Number: US-PFIZER INC-2011151383

PATIENT
  Sex: Male

DRUGS (7)
  1. CLOPIDOGREL [Concomitant]
     Dosage: UNK
  2. LIPITOR [Suspect]
     Dosage: UNK
     Dates: start: 20010101, end: 20110501
  3. RAMIPRIL [Concomitant]
     Dosage: UNK
  4. FENOFIBRIC ACID [Suspect]
     Dosage: 135 MG, 1X/DAY
     Dates: start: 20080101, end: 20110501
  5. RISEDRONATE SODIUM [Concomitant]
     Dosage: UNK
  6. FUROSEMIDE [Concomitant]
  7. INSULIN GLARGINE [Concomitant]
     Dosage: UNK

REACTIONS (3)
  - RENAL FUNCTION TEST ABNORMAL [None]
  - RHABDOMYOLYSIS [None]
  - ARTHRALGIA [None]
